FAERS Safety Report 19466352 (Version 1)
Quarter: 2021Q2

REPORT INFORMATION
  Report Type: Spontaneous
  Country: JP (occurrence: JP)
  Receive Date: 20210627
  Receipt Date: 20210627
  Transmission Date: 20210717
  Serious: Yes (Other)
  Sender: FDA-Public Use
  Company Number: NVSJ2021JP009316

PATIENT
  Age: 71 Year
  Sex: Male
  Weight: 68 kg

DRUGS (12)
  1. REVOLADE TAB [Suspect]
     Active Substance: ELTROMBOPAG OLAMINE
     Dosage: 1 DF
     Route: 048
     Dates: start: 20210419, end: 20210426
  2. RISUMIC [Concomitant]
     Active Substance: AMEZINIUM METILSULFATE
     Indication: PRODUCT USED FOR UNKNOWN INDICATION
     Dosage: 1 DF, PRN
     Route: 065
  3. RABEPRAZOLE NA [Concomitant]
     Active Substance: RABEPRAZOLE SODIUM
     Indication: PRODUCT USED FOR UNKNOWN INDICATION
     Dosage: 1 DF
     Route: 065
  4. NICORANDIL [Concomitant]
     Active Substance: NICORANDIL
     Indication: PRODUCT USED FOR UNKNOWN INDICATION
     Dosage: 1 DF
     Route: 065
  5. REVOLADE TAB [Suspect]
     Active Substance: ELTROMBOPAG OLAMINE
     Indication: IMMUNE THROMBOCYTOPENIA
     Dosage: 1 DF
     Route: 048
     Dates: start: 20210302
  6. PREDONINE [Concomitant]
     Active Substance: PREDNISOLONE
     Indication: IMMUNE THROMBOCYTOPENIA
     Dosage: UNK
     Route: 065
     Dates: start: 20210201
  7. SODIUM ZIRCONIUM CYCLOSILICATE. [Concomitant]
     Active Substance: SODIUM ZIRCONIUM CYCLOSILICATE
     Indication: PRODUCT USED FOR UNKNOWN INDICATION
     Dosage: UNK
     Route: 065
  8. BISOPROLOL FUMARATE. [Concomitant]
     Active Substance: BISOPROLOL FUMARATE
     Indication: PRODUCT USED FOR UNKNOWN INDICATION
     Dosage: 0.5 DF
     Route: 065
  9. REVOLADE TAB [Suspect]
     Active Substance: ELTROMBOPAG OLAMINE
     Dosage: 3 DF
     Route: 048
     Dates: start: 20210316
  10. REVOLADE TAB [Suspect]
     Active Substance: ELTROMBOPAG OLAMINE
     Dosage: 2 DF
     Route: 048
     Dates: start: 20210309
  11. REVOLADE TAB [Suspect]
     Active Substance: ELTROMBOPAG OLAMINE
     Dosage: 2 DF
     Route: 048
     Dates: start: 20210405
  12. DOPS [Concomitant]
     Active Substance: DROXIDOPA
     Indication: PRODUCT USED FOR UNKNOWN INDICATION
     Dosage: 1 DF, PRN
     Route: 065

REACTIONS (1)
  - Hypophosphataemia [Unknown]

NARRATIVE: CASE EVENT DATE: 20210322
